FAERS Safety Report 8487469-0 (Version None)
Quarter: 2012Q2

REPORT INFORMATION
  Report Type: 
  Country: None (occurrence: None)
  Receive Date: 20120606
  Receipt Date: 20120531
  Transmission Date: 20120825
  Serious: Yes (Other)
  Sender: FDA-Public Use
  Company Number: 2012032513

PATIENT
  Sex: Female

DRUGS (1)
  1. HIZENTRA [Suspect]
     Dosage: (SUBCUTANEOUS)
     Route: 058
     Dates: start: 20120201

REACTIONS (2)
  - NEPHROLITHIASIS [None]
  - PAIN [None]
